FAERS Safety Report 5392600-X (Version None)
Quarter: 2007Q3

REPORT INFORMATION
  Report Type: 
  Country: None (occurrence: None)
  Receive Date: 20070720
  Receipt Date: 20070716
  Transmission Date: 20080115
  Serious: Yes (Other)
  Sender: FDA-Public Use
  Company Number: US-ALLERGAN-0707237US

PATIENT
  Sex: Female

DRUGS (1)
  1. BOTOX COSMETIC [Suspect]
     Indication: MIGRAINE
     Dosage: 17.5 UNITS, SINGLE
     Route: 030
     Dates: start: 20070706, end: 20070706

REACTIONS (2)
  - COMPLEX PARTIAL SEIZURES [None]
  - INJECTION SITE PAIN [None]
